FAERS Safety Report 24904593 (Version 1)
Quarter: 2025Q1

REPORT INFORMATION
  Report Type: Spontaneous
  Country: US (occurrence: US)
  Receive Date: 20250130
  Receipt Date: 20250130
  Transmission Date: 20250408
  Serious: No
  Sender: Tarsus Pharmaceuticals
  Company Number: US-TARSUS PHARMACEUTICALS-TSP-US-2024-000532

PATIENT
  Sex: Female

DRUGS (2)
  1. XDEMVY [Suspect]
     Active Substance: LOTILANER
     Indication: Blepharitis
     Dosage: 1 DROP, BID IN EACH EYE
     Route: 047
     Dates: start: 202407
  2. XDEMVY [Suspect]
     Active Substance: LOTILANER
     Dosage: 1 DROP, BID IN EACH EYE
     Route: 047
     Dates: start: 202408

REACTIONS (4)
  - Product container issue [Unknown]
  - Product leakage [Unknown]
  - Product use issue [Unknown]
  - Therapy interrupted [Unknown]
